FAERS Safety Report 10065143 (Version 1)
Quarter: 2014Q2

REPORT INFORMATION
  Report Type: Spontaneous
  Country: US (occurrence: None)
  Receive Date: 20140407
  Receipt Date: 20140407
  Transmission Date: 20141212
  Serious: Yes (Hospitalization)
  Sender: FDA-Public Use
  Company Number: None

PATIENT
  Age: 84 Year
  Sex: Male
  Weight: 69.5 kg

DRUGS (1)
  1. ATORVASTATIN [Suspect]
     Indication: CORONARY ARTERIAL STENT INSERTION
     Route: 048
     Dates: start: 20140128, end: 20140303

REACTIONS (5)
  - Musculoskeletal pain [None]
  - Pain in extremity [None]
  - Asthenia [None]
  - Transaminases increased [None]
  - Blood creatine phosphokinase increased [None]
